FAERS Safety Report 18117476 (Version 3)
Quarter: 2020Q3

REPORT INFORMATION
  Report Type: Spontaneous
  Country: PT (occurrence: PT)
  Receive Date: 20200805
  Receipt Date: 20200904
  Transmission Date: 20201103
  Serious: Yes (Other)
  Sender: FDA-Public Use
  Company Number: PT-UCBSA-2020030646

PATIENT
  Age: 70 Year
  Sex: Female

DRUGS (3)
  1. ONGENTYS [Suspect]
     Active Substance: OPICAPONE
     Indication: ON AND OFF PHENOMENON
     Dosage: UNK
  2. SINEMET [Suspect]
     Active Substance: CARBIDOPA\LEVODOPA
     Indication: ON AND OFF PHENOMENON
     Dosage: LEVODOPA DOSE: 700 (NO UNIT PROVIDED), UNKNOWN
  3. NEUPRO [Suspect]
     Active Substance: ROTIGOTINE
     Indication: ON AND OFF PHENOMENON
     Dosage: UNK

REACTIONS (23)
  - Tremor [Unknown]
  - Fatigue [Unknown]
  - Dysphonia [Unknown]
  - Muscle rigidity [Unknown]
  - Reduced facial expression [Unknown]
  - Gait disturbance [Unknown]
  - Constipation [Unknown]
  - Psychotic disorder [Unknown]
  - Confusional state [Unknown]
  - Anxiety [Unknown]
  - Bradykinesia [Unknown]
  - Depression [Unknown]
  - Dementia [Unknown]
  - Therapeutic response shortened [Unknown]
  - Sleep disorder [Unknown]
  - Pain [Unknown]
  - Dystonia [Unknown]
  - Balance disorder [Unknown]
  - Dysphagia [Unknown]
  - Delusion [Unknown]
  - Saliva altered [Unknown]
  - Freezing phenomenon [Unknown]
  - Hallucination [Unknown]
